FAERS Safety Report 8596260 (Version 3)
Quarter: 2013Q4

REPORT INFORMATION
  Report Type: Spontaneous
  Country: US (occurrence: US)
  Receive Date: 20120605
  Receipt Date: 20131129
  Transmission Date: 20140711
  Serious: Yes (Hospitalization, Disabling)
  Sender: FDA-Public Use
  Company Number: US-ASTRAZENECA-2012SE34822

PATIENT
  Age: 39 Year
  Sex: Male

DRUGS (21)
  1. NEXIUM [Suspect]
     Indication: GASTROOESOPHAGEAL REFLUX DISEASE
     Route: 048
     Dates: start: 2007
  2. NEXIUM [Suspect]
     Indication: GASTROOESOPHAGEAL REFLUX DISEASE
     Route: 048
     Dates: start: 2007
  3. PRILOSEC [Suspect]
     Dosage: 1 TIME A DAY
     Route: 048
  4. PRILOSEC OTC [Suspect]
     Dosage: 2 TIMES A DAY
     Route: 048
  5. PROTONIX [Concomitant]
     Dosage: 1 TIME A DAY
  6. TUMS [Concomitant]
     Dates: start: 1995, end: 1997
  7. CENTRUM VITAMIN [Concomitant]
  8. CYCLOBENSIPRINE [Concomitant]
     Route: 048
  9. CYCLOBENSIPRINE [Concomitant]
  10. TYLENOL [Concomitant]
  11. IBUPROFEN [Concomitant]
  12. DIAZEPAM [Concomitant]
  13. ROPINIROLE HCL [Concomitant]
     Indication: RESTLESS LEGS SYNDROME
  14. RANITIDINE [Concomitant]
  15. PREVACID [Concomitant]
     Route: 048
     Dates: start: 20090421
  16. AMITRIPTYLINE [Concomitant]
     Route: 048
  17. GABAPENTIN [Concomitant]
     Route: 048
  18. LISINOPRIL [Concomitant]
     Dates: start: 20120217
  19. PREDNISONE [Concomitant]
  20. TIZANIDINE HCL [Concomitant]
     Indication: MUSCLE RELAXANT THERAPY
     Dosage: 1 TABLET AT NIGHT AS NEEDED
  21. COLCHICINE [Concomitant]
     Dates: start: 20080329

REACTIONS (6)
  - Osteoporosis [Unknown]
  - Foot fracture [Unknown]
  - Foot deformity [Unknown]
  - Stress fracture [Unknown]
  - Bone loss [Unknown]
  - Osteopenia [Unknown]
